FAERS Safety Report 7076721-1 (Version None)
Quarter: 2010Q4

REPORT INFORMATION
  Report Type: 
  Country: None (occurrence: None)
  Receive Date: 20101101
  Receipt Date: 20101029
  Transmission Date: 20110411
  Serious: Yes (Life-Threatening, Hospitalization)
  Sender: FDA-Public Use
  Company Number: US-B.I. PHARMACEUTICALS,INC./RIDGEFIELD-2010-BP-09465BP

PATIENT
  Sex: Male
  Weight: 99.8 kg

DRUGS (12)
  1. DABIGATRAN [Suspect]
     Indication: CEREBROVASCULAR ACCIDENT PROPHYLAXIS
     Route: 048
     Dates: start: 20070219, end: 20100804
  2. DABIGATRAN [Suspect]
     Indication: ATRIAL FIBRILLATION
  3. HYZAAR [Concomitant]
     Indication: HYPERTENSION
     Route: 048
     Dates: start: 20100801
  4. HYZAAR [Concomitant]
     Route: 048
  5. COREG CR [Concomitant]
     Indication: CARDIAC FAILURE CONGESTIVE
     Dosage: 20 MG
     Route: 048
  6. COREG CR [Concomitant]
     Indication: ATRIAL FIBRILLATION
  7. HYDROCHLOROTHIAZIDE [Concomitant]
     Indication: HYPERTENSION
     Dosage: 12.5 MG
     Route: 048
  8. VITAMIN B COMPLEX CAP [Concomitant]
     Indication: ERECTILE DYSFUNCTION
     Dosage: 1 ANZ
     Route: 048
  9. TESTIM [Concomitant]
     Indication: ERECTILE DYSFUNCTION
     Route: 061
  10. TRIAMCINOLONE [Concomitant]
     Indication: RASH
     Route: 061
  11. DULCOLAX [Concomitant]
     Indication: CONSTIPATION
     Dosage: 10 MG
     Route: 048
     Dates: start: 20100501, end: 20100823
  12. AMBIEN [Concomitant]
     Indication: INSOMNIA
     Dosage: 5 MG
     Route: 048
     Dates: start: 20100801

REACTIONS (4)
  - HAEMOCHROMATOSIS [None]
  - HEPATIC CIRRHOSIS [None]
  - HEPATIC NEOPLASM MALIGNANT [None]
  - MENTAL STATUS CHANGES [None]
